FAERS Safety Report 5000086-X (Version None)
Quarter: 2006Q2

REPORT INFORMATION
  Report Type: 
  Country: None (occurrence: None)
  Receive Date: 20060501
  Receipt Date: 20060419
  Transmission Date: 20061013
  Serious: Yes (Hospitalization)
  Sender: FDA-Public Use
  Company Number: 2005054560

PATIENT
  Age: 81 Year
  Sex: Male
  Weight: 72 kg

DRUGS (5)
  1. ZITHROMAX [Suspect]
     Indication: BRONCHITIS ACUTE
     Dosage: 250 MG (250 MG, DAILY; INTERVAL: EVERY DAY), ORAL
     Route: 048
     Dates: start: 20050125, end: 20050129
  2. ATORVASTATIN [Concomitant]
  3. OMEPRAZOLE [Concomitant]
  4. FLUOXETINE [Concomitant]
  5. LORMETAZEPAM [Concomitant]

REACTIONS (8)
  - CEREBRAL ATROPHY [None]
  - CONFUSIONAL STATE [None]
  - DELIRIUM [None]
  - DISORIENTATION [None]
  - DISTURBANCE IN ATTENTION [None]
  - HALLUCINATION, VISUAL [None]
  - INCOHERENT [None]
  - SLEEP DISORDER [None]
